FAERS Safety Report 20572539 (Version 1)
Quarter: 2022Q1

REPORT INFORMATION
  Report Type: Spontaneous
  Country: US (occurrence: None)
  Receive Date: 20220308
  Receipt Date: 20220308
  Transmission Date: 20220423
  Serious: No
  Sender: FDA-Public Use
  Company Number: None

PATIENT
  Age: 64 Year
  Sex: Female

DRUGS (1)
  1. ENBREL [Suspect]
     Active Substance: ETANERCEPT
     Dosage: FREQUENCY : WEEKLY;?
     Route: 058
     Dates: start: 20210222

REACTIONS (4)
  - Neuropathy peripheral [None]
  - Product dose omission issue [None]
  - Sensation of foreign body [None]
  - Blood glucose decreased [None]

NARRATIVE: CASE EVENT DATE: 20220222
